FAERS Safety Report 4304231-0 (Version None)
Quarter: 2004Q1

REPORT INFORMATION
  Report Type: 
  Country: None (occurrence: None)
  Receive Date: 20040225
  Receipt Date: 20040213
  Transmission Date: 20041129
  Serious: Yes (Life-Threatening)
  Sender: FDA-Public Use
  Company Number: WAES 0402AUS00140

PATIENT
  Age: 35 Year
  Weight: 68 kg

DRUGS (5)
  1. CYCLOSPORINE [Suspect]
     Dates: start: 20001101, end: 20020901
  2. METFORMIN HYDROCHLORIDE [Concomitant]
  3. PREDNISONE [Concomitant]
     Dates: start: 20020703
  4. RAMIPRIL [Concomitant]
  5. ZOCOR [Suspect]
     Indication: DIABETES MELLITUS
     Route: 048
     Dates: start: 20020401, end: 20020917

REACTIONS (6)
  - DEHYDRATION [None]
  - DIABETES MELLITUS [None]
  - MYOSITIS [None]
  - RENAL FAILURE ACUTE [None]
  - RHABDOMYOLYSIS [None]
  - URINARY TRACT INFECTION [None]
